FAERS Safety Report 24170712 (Version 1)
Quarter: 2024Q3

REPORT INFORMATION
  Report Type: Spontaneous
  Country: US (occurrence: None)
  Receive Date: 20240802
  Receipt Date: 20240802
  Transmission Date: 20241016
  Serious: No
  Sender: Public
  Company Number: None

PATIENT
  Age: 43 Year
  Sex: Male
  Weight: 117 kg

DRUGS (1)
  1. PANZYGA [Suspect]
     Active Substance: HUMAN IMMUNOGLOBULIN G
     Indication: Multiple sclerosis
     Dosage: FREQUENCY : DAILY;?
     Route: 041
     Dates: start: 20240731, end: 20240802

REACTIONS (4)
  - Flushing [None]
  - Paraesthesia [None]
  - Discomfort [None]
  - Infusion related reaction [None]

NARRATIVE: CASE EVENT DATE: 20240802
